FAERS Safety Report 6933227-5 (Version None)
Quarter: 2010Q3

REPORT INFORMATION
  Report Type: 
  Country: None (occurrence: None)
  Receive Date: 20100820
  Receipt Date: 20100802
  Transmission Date: 20110219
  Serious: Yes (Life-Threatening)
  Sender: FDA-Public Use
  Company Number: GB-RANBAXY-2010RR-37320

PATIENT
  Age: 20 Year
  Sex: Female
  Weight: 65 kg

DRUGS (15)
  1. METOCLOPRAMIDE [Suspect]
     Indication: PROPHYLAXIS
     Dosage: 10 MG, UNK
     Route: 042
  2. RANITIDINE [Suspect]
     Indication: PROPHYLAXIS
     Dosage: 10 MG, UNK
     Route: 042
  3. BUPIVACAINE HCL [Suspect]
     Indication: EPIDURAL ANAESTHESIA
     Dosage: 10 ML, UNK
     Route: 065
  4. BUPIVACAINE HCL [Suspect]
     Dosage: 3 ML, UNK
     Route: 066
  5. BUPIVACAINE HCL [Suspect]
     Dosage: 8 ML, UNK
     Route: 065
  6. FENTANYL CITRATE [Suspect]
     Indication: ANALGESIC THERAPY
     Dosage: 50 UG, UNK
     Route: 008
  7. ISOFLURANE [Suspect]
     Indication: PRODUCT USED FOR UNKNOWN INDICATION
     Route: 065
  8. LIDOCAINE [Suspect]
     Indication: EPIDURAL ANAESTHESIA
     Dosage: 10 ML, UNK
     Route: 065
  9. OXYTOCIN [Suspect]
     Indication: PRODUCT USED FOR UNKNOWN INDICATION
     Route: 065
  10. SODIUM CITRATE [Suspect]
     Indication: PROPHYLAXIS
     Dosage: 30 ML, UNK
     Route: 048
  11. SUXAMETHONIUM [Suspect]
     Indication: ANAESTHESIA
     Dosage: 100 MG, UNK
     Route: 065
  12. THIOPENTAL SODIUM [Suspect]
     Indication: ANAESTHESIA
     Dosage: 375 MG, UNK
     Route: 065
  13. CARBOPROST [Concomitant]
     Dosage: 250 UG, UNK
     Route: 030
  14. CARBOPROST [Concomitant]
     Dosage: 250 UG, UNK
  15. AMPICILLIN SODIUM/SULBACTAM SODIUM [Concomitant]
     Dosage: 1.2 G, UNK
     Route: 042

REACTIONS (3)
  - CARDIAC ARREST [None]
  - DRUG EXPOSURE DURING PREGNANCY [None]
  - INCORRECT ROUTE OF DRUG ADMINISTRATION [None]
